FAERS Safety Report 12478815 (Version 1)
Quarter: 2016Q2

REPORT INFORMATION
  Report Type: Spontaneous
  Country: US (occurrence: US)
  Receive Date: 20160620
  Receipt Date: 20160620
  Transmission Date: 20160815
  Serious: No
  Sender: FDA-Public Use
  Company Number: US-ASTRAZENECA-2016SE49352

PATIENT
  Sex: Male
  Weight: 70.8 kg

DRUGS (9)
  1. ASPIRIN. [Concomitant]
     Active Substance: ASPIRIN
     Indication: CARDIAC DISORDER
     Route: 048
  2. NITROGLYCERINE [Concomitant]
     Active Substance: NITROGLYCERIN
     Indication: CARDIAC DISORDER
     Dosage: DAILY
  3. QUINAPRIL HCTZ [Concomitant]
     Indication: CARDIAC DISORDER
     Route: 048
  4. NORVASC [Concomitant]
     Active Substance: AMLODIPINE BESYLATE
     Indication: CARDIAC DISORDER
     Route: 048
  5. CRESTOR [Suspect]
     Active Substance: ROSUVASTATIN CALCIUM
     Indication: BLOOD CHOLESTEROL ABNORMAL
     Route: 048
  6. XARELTO [Concomitant]
     Active Substance: RIVAROXABAN
     Indication: HEART RATE IRREGULAR
     Route: 048
     Dates: start: 2015
  7. DILTIAZEM 24H CD [Concomitant]
     Indication: CARDIAC DISORDER
     Route: 048
  8. ATENOLOL. [Suspect]
     Active Substance: ATENOLOL
     Indication: CARDIAC DISORDER
     Route: 048
  9. CRESTOR [Suspect]
     Active Substance: ROSUVASTATIN CALCIUM
     Indication: BLOOD CHOLESTEROL ABNORMAL
     Route: 048
     Dates: start: 20160428

REACTIONS (5)
  - Heart rate irregular [Unknown]
  - Arterial occlusive disease [Not Recovered/Not Resolved]
  - Haemorrhage urinary tract [Recovered/Resolved]
  - Palpitations [Unknown]
  - Intentional product misuse [Not Recovered/Not Resolved]
